FAERS Safety Report 9885884 (Version 1)
Quarter: 2014Q1

REPORT INFORMATION
  Report Type: Spontaneous
  Country: US (occurrence: None)
  Receive Date: 20140207
  Receipt Date: 20140207
  Transmission Date: 20141002
  Serious: Yes (Hospitalization)
  Sender: FDA-Public Use
  Company Number: None

PATIENT
  Age: 84 Year
  Sex: Male
  Weight: 78.93 kg

DRUGS (8)
  1. DECITABINE [Suspect]
     Indication: ACUTE MYELOID LEUKAEMIA
     Dosage: 20MG/M2;QDX10;28DAYCYCLE
     Dates: start: 20140122
  2. AMLODIPINE [Concomitant]
  3. NORCO [Concomitant]
  4. PLAVIX [Concomitant]
  5. PRAVASTATIN [Concomitant]
  6. TIMOLOL [Concomitant]
  7. VALTREX [Concomitant]
  8. PROCHLORPERAZINE [Concomitant]

REACTIONS (1)
  - Intestinal obstruction [None]
